FAERS Safety Report 6241838-8 (Version None)
Quarter: 2009Q2

REPORT INFORMATION
  Report Type: 
  Country: None (occurrence: None)
  Receive Date: 20090623
  Receipt Date: 20090611
  Transmission Date: 20091009
  Serious: Yes (Life-Threatening, Hospitalization)
  Sender: FDA-Public Use
  Company Number: JP-PFIZER INC-2009202935

PATIENT
  Age: 82 Year

DRUGS (10)
  1. VFEND [Suspect]
     Indication: SYSTEMIC MYCOSIS
     Dosage: 200 MG, 2X/DAY
     Route: 048
     Dates: start: 20090403, end: 20090417
  2. WARFARIN POTASSIUM [Interacting]
     Dosage: 1 MG, 1X/DAY
     Route: 048
     Dates: end: 20090417
  3. ALLELOCK [Concomitant]
     Dosage: UNK
     Route: 048
     Dates: start: 20090403
  4. HUMALOG [Concomitant]
     Dosage: UNK
     Dates: start: 20061101
  5. METFORMIN HCL [Concomitant]
     Dosage: UNK
     Route: 048
     Dates: start: 20080208
  6. EPADEL [Concomitant]
     Dosage: UNK
     Route: 048
     Dates: start: 20080111
  7. LASIX [Concomitant]
     Dosage: UNK
     Route: 048
     Dates: start: 20061101
  8. DIGOXIN [Concomitant]
     Dosage: UNK
     Dates: start: 20061101
  9. ALMATOL [Concomitant]
     Dosage: UNK
     Route: 048
     Dates: start: 20070608
  10. ALLEGRA [Concomitant]
     Route: 048
     Dates: end: 20090403

REACTIONS (2)
  - COAGULATION TIME PROLONGED [None]
  - DRUG INTERACTION [None]
